FAERS Safety Report 8873729 (Version 4)
Quarter: 2013Q1

REPORT INFORMATION
  Report Type: Spontaneous
  Country: US (occurrence: US)
  Receive Date: 20121029
  Receipt Date: 20130325
  Transmission Date: 20140127
  Serious: No
  Sender: FDA-Public Use
  Company Number: US-009507513-1210USA005648

PATIENT
  Age: 22 Year
  Sex: Female
  Weight: 62.13 kg

DRUGS (1)
  1. IMPLANON [Suspect]
     Indication: CONTRACEPTION
     Dosage: 68 MG, EVERY 3 YEARS
     Dates: start: 20120215, end: 20120927

REACTIONS (3)
  - Device breakage [Unknown]
  - Paraesthesia [Unknown]
  - Device kink [Unknown]
